FAERS Safety Report 9760415 (Version 3)
Quarter: 2014Q2

REPORT INFORMATION
  Report Type: Report from Study
  Country: JP (occurrence: JP)
  Receive Date: 20131216
  Receipt Date: 20140617
  Transmission Date: 20141212
  Serious: Yes (Death)
  Sender: FDA-Public Use
  Company Number: JP-SA-2013SA102373

PATIENT
  Age: 58 Year
  Sex: Male
  Weight: 57 kg

DRUGS (25)
  1. THYMOGLOBULIN [Suspect]
     Indication: ACUTE GRAFT VERSUS HOST DISEASE
     Route: 042
     Dates: start: 20130906, end: 20130906
  2. ADONA [Concomitant]
     Indication: GASTROINTESTINAL HAEMORRHAGE
     Dates: start: 20130821, end: 20130907
  3. ALBUMINAR [Concomitant]
     Indication: GASTROINTESTINAL HAEMORRHAGE
     Route: 042
     Dates: start: 20130902, end: 20130907
  4. AMINOLEBAN [Concomitant]
     Indication: HEPATIC FUNCTION ABNORMAL
     Route: 042
     Dates: start: 20130627, end: 20130907
  5. AMINOLEBAN [Concomitant]
     Indication: HEPATIC ENCEPHALOPATHY
     Route: 042
     Dates: start: 20130627, end: 20130907
  6. SODIUM CHLORIDE [Concomitant]
     Indication: PROPHYLAXIS
     Dosage: 10 % SODIUM CHLORIDE INJECTION
     Dates: start: 20130904, end: 20130907
  7. GAMOFA [Concomitant]
     Indication: GASTROINTESTINAL HAEMORRHAGE
     Dosage: INJECTION 20 MG
     Dates: start: 20130907, end: 20130907
  8. NEOPHAGEN [Concomitant]
     Indication: HEPATIC FUNCTION ABNORMAL
     Dosage: NEOPHAGEN I.V. INJECTION 100 ML
     Route: 042
     Dates: start: 20130825, end: 20130907
  9. NEOPHAGEN [Concomitant]
     Indication: HEPATIC ENCEPHALOPATHY
     Dosage: NEOPHAGEN I.V. INJECTION 100 ML
     Route: 042
     Dates: start: 20130825, end: 20130907
  10. NEOLAMIN [Concomitant]
     Indication: NUTRITIONAL SUPPLEMENTATION
     Dates: start: 20130821, end: 20130907
  11. HUMULIN R [Concomitant]
     Indication: TYPE 2 DIABETES MELLITUS
     Dates: start: 20130706, end: 20130907
  12. FUNGUARD [Concomitant]
     Indication: ANTIFUNGAL PROPHYLAXIS
     Dosage: FUNGUARD 50 MG FOR INFUSION.
     Route: 042
     Dates: start: 20130823, end: 20130907
  13. GLUCOSE [Concomitant]
     Indication: TYPE 2 DIABETES MELLITUS
     Dosage: 50 % GLUCOSE
     Dates: start: 20130908, end: 20130908
  14. PREDONINE [Concomitant]
     Indication: GRAFT VERSUS HOST DISEASE
     Dates: start: 20130905, end: 20130907
  15. LACTEC [Concomitant]
     Indication: DEHYDRATION
     Dates: start: 20130904, end: 20130906
  16. LASIX [Concomitant]
     Indication: FLUID RETENTION
     Dates: start: 20130814, end: 20130907
  17. VASOLAN [Concomitant]
     Indication: TACHYCARDIA
     Route: 042
     Dates: start: 20130905, end: 20130907
  18. ARCRANE [Concomitant]
     Indication: GASTROINTESTINAL HAEMORRHAGE
     Dosage: ARCRANE SOLUTION
     Dates: start: 20130822, end: 20130907
  19. ITRACONAZOLE [Concomitant]
     Indication: ANTIFUNGAL PROPHYLAXIS
     Dates: start: 20130817, end: 20130907
  20. THROMBIN [Concomitant]
     Indication: GASTROINTESTINAL HAEMORRHAGE
     Dosage: THROMBIN ORAL FINE GRAN. 10, 000 UNITS
     Route: 048
     Dates: start: 20130822, end: 20130907
  21. PARIET [Concomitant]
     Indication: GASTROINTESTINAL HAEMORRHAGE
     Route: 048
     Dates: start: 20130827, end: 20130907
  22. DUPHALAC [Concomitant]
     Indication: HEPATIC ENCEPHALOPATHY
     Route: 048
     Dates: start: 20130801, end: 20130907
  23. REBAMIPIDE [Concomitant]
     Indication: GASTROINTESTINAL HAEMORRHAGE
     Route: 048
     Dates: start: 20130805, end: 20130907
  24. URSO [Concomitant]
     Indication: HEPATIC FUNCTION ABNORMAL
     Dates: start: 20130718, end: 20130907
  25. URSO [Concomitant]
     Indication: HEPATIC ENCEPHALOPATHY
     Dates: start: 20130718, end: 20130907

REACTIONS (2)
  - Shock haemorrhagic [Fatal]
  - Respiratory failure [Fatal]
